FAERS Safety Report 15429133 (Version 1)
Quarter: 2018Q3

REPORT INFORMATION
  Report Type: Spontaneous
  Country: US (occurrence: US)
  Receive Date: 20180926
  Receipt Date: 20180926
  Transmission Date: 20181010
  Serious: No
  Sender: FDA-Public Use
  Company Number: US-PFIZER INC-2018386121

PATIENT
  Age: 89 Year
  Sex: Female
  Weight: 54 kg

DRUGS (3)
  1. LYRICA [Suspect]
     Active Substance: PREGABALIN
     Indication: HERPES ZOSTER
     Dosage: 50 MG, 2X/DAY
     Route: 048
     Dates: start: 20180914, end: 20180918
  2. AMLODIPINE [Concomitant]
     Active Substance: AMLODIPINE BESYLATE
     Indication: BLOOD PRESSURE ABNORMAL
     Dosage: UNK, 1X/DAY
     Route: 048
     Dates: start: 2017
  3. NAMZARIC [Concomitant]
     Active Substance: DONEPEZIL HYDROCHLORIDE\MEMANTINE HYDROCHLORIDE
     Indication: DEMENTIA
     Dosage: UNK, 1X/DAY
     Route: 048

REACTIONS (4)
  - Hallucination [Not Recovered/Not Resolved]
  - Middle insomnia [Unknown]
  - Abnormal behaviour [Unknown]
  - Fall [Unknown]

NARRATIVE: CASE EVENT DATE: 20180916
